FAERS Safety Report 18630200 (Version 2)
Quarter: 2025Q2

REPORT INFORMATION
  Report Type: Spontaneous
  Country: CZ (occurrence: CZ)
  Receive Date: 20201217
  Receipt Date: 20250509
  Transmission Date: 20250717
  Serious: Yes (Other)
  Sender: AUROBINDO
  Company Number: CZ-SUN PHARMACEUTICAL INDUSTRIES LTD-2020RR-270243

PATIENT
  Sex: Female

DRUGS (3)
  1. BORTEZOMIB [Suspect]
     Active Substance: BORTEZOMIB
     Indication: Lichen myxoedematosus
     Route: 065
     Dates: start: 2009
  2. DEXAMETHASONE [Suspect]
     Active Substance: DEXAMETHASONE
     Indication: Lichen myxoedematosus
     Route: 065
     Dates: start: 2009
  3. CYCLOPHOSPHAMIDE [Suspect]
     Active Substance: CYCLOPHOSPHAMIDE
     Indication: Lichen myxoedematosus
     Route: 065
     Dates: start: 2009

REACTIONS (2)
  - Disease recurrence [Unknown]
  - Therapy partial responder [Unknown]
